FAERS Safety Report 20878166 (Version 1)
Quarter: 2022Q2

REPORT INFORMATION
  Report Type: Spontaneous
  Country: US (occurrence: US)
  Receive Date: 20220526
  Receipt Date: 20220526
  Transmission Date: 20220720
  Serious: Yes (Other)
  Sender: FDA-Public Use
  Company Number: US-SCA PHARMACEUTICALS-2022SCA00013

PATIENT
  Age: 34 Year
  Sex: Female
  Weight: 99 kg

DRUGS (4)
  1. BUPIVACAINE\FENTANYL [Suspect]
     Active Substance: BUPIVACAINE\FENTANYL
     Indication: Labour pain
     Dosage: 8 ML/ HOUR; RN BOLUS 8ML Q 30 MIN, MAX 1 HR LIMIT 24ML
     Route: 008
     Dates: start: 20220421, end: 20220421
  2. BUPIVACAINE\FENTANYL [Suspect]
     Active Substance: BUPIVACAINE\FENTANYL
     Dosage: 6 ML/ HOUR
     Route: 008
     Dates: start: 20220421, end: 20220421
  3. VITAMINS [Concomitant]
     Active Substance: VITAMINS
  4. COLACE [Concomitant]
     Active Substance: DOCUSATE SODIUM

REACTIONS (6)
  - Caesarean section [Recovered/Resolved]
  - Arrested labour [Recovered/Resolved]
  - Tachycardia [Unknown]
  - Amniotic cavity infection [Recovered/Resolved]
  - Blood pressure decreased [Recovered/Resolved]
  - Maternal exposure during pregnancy [Recovered/Resolved]

NARRATIVE: CASE EVENT DATE: 20220421
